FAERS Safety Report 5236950-6 (Version None)
Quarter: 2007Q1

REPORT INFORMATION
  Report Type: 
  Country: None (occurrence: None)
  Receive Date: 20061204
  Receipt Date: 20060901
  Transmission Date: 20070707
  Serious: No
  Sender: FDA-Public Use
  Company Number: 2006-BP-06756BP

PATIENT
  Age: 74 Year
  Sex: Male

DRUGS (12)
  1. SPIRIVA [Suspect]
     Indication: CHRONIC OBSTRUCTIVE PULMONARY DISEASE
     Dosage: 18 MCG (18 MCG,1 IN 1 D),IH
     Route: 055
     Dates: start: 20060101
  2. SPIRIVA [Suspect]
     Indication: RESPIRATORY DISORDER
     Dosage: 18 MCG (18 MCG,1 IN 1 D),IH
     Route: 055
     Dates: start: 20060101
  3. SPIRIVA [Suspect]
  4. ADVAIR (SERETIDE /01420901/) [Concomitant]
  5. ALBUTEROL [Concomitant]
  6. COREG [Concomitant]
  7. ZESTRIL [Concomitant]
  8. CARTIA XL (ALL OTHER THERAPEUTIC PRODUCTS) [Concomitant]
  9. TEMAZEPAM [Concomitant]
  10. COUMADIN [Concomitant]
  11. XALATAN [Concomitant]
  12. TRUSOPT [Concomitant]

REACTIONS (1)
  - DYSPNOEA [None]
